FAERS Safety Report 18609645 (Version 1)
Quarter: 2020Q4

REPORT INFORMATION
  Report Type: Spontaneous
  Country: DK (occurrence: DK)
  Receive Date: 20201214
  Receipt Date: 20201214
  Transmission Date: 20210114
  Serious: Yes (Other)
  Sender: FDA-Public Use
  Company Number: DK-ALVOGEN-2020-ALVOGEN-115459

PATIENT
  Age: 6 Year
  Sex: Female

DRUGS (3)
  1. NITROFURANTOIN. [Suspect]
     Active Substance: NITROFURANTOIN
     Indication: URINARY TRACT INFECTION
     Dosage: 25 MG/DAY
  2. SOLIFENACIN [Suspect]
     Active Substance: SOLIFENACIN
     Indication: URINARY TRACT INFECTION
  3. METHYLPREDNISOLONE. [Suspect]
     Active Substance: METHYLPREDNISOLONE
     Indication: PRODUCT USED FOR UNKNOWN INDICATION
     Dosage: 35 MG/KG
     Route: 042

REACTIONS (2)
  - Pneumocystis jirovecii infection [Unknown]
  - Pulmonary fibrosis [Unknown]
